FAERS Safety Report 9121435 (Version 2)
Quarter: 2013Q2

REPORT INFORMATION
  Report Type: Spontaneous
  Country: US (occurrence: US)
  Receive Date: 20130225
  Receipt Date: 20130617
  Transmission Date: 20140414
  Serious: Yes (Hospitalization, Other)
  Sender: FDA-Public Use
  Company Number: US-BAYER-2013-022341

PATIENT
  Age: 19 Year
  Sex: Female

DRUGS (6)
  1. YAZ [Suspect]
  2. YASMIN [Suspect]
  3. GIANVI [Suspect]
  4. SINGULAIR [Concomitant]
  5. ALBUTEROL [Concomitant]
  6. OXYCODONE [Concomitant]

REACTIONS (2)
  - Cholecystitis chronic [None]
  - Pulmonary embolism [None]
